FAERS Safety Report 23905617 (Version 1)
Quarter: 2024Q2

REPORT INFORMATION
  Report Type: Report from Study
  Country: IT (occurrence: IT)
  Receive Date: 20240527
  Receipt Date: 20240527
  Transmission Date: 20240716
  Serious: Yes (Other)
  Sender: FDA-Public Use
  Company Number: None

PATIENT
  Age: 61 Year
  Sex: Female
  Weight: 60 kg

DRUGS (2)
  1. PACLITAXEL [Suspect]
     Active Substance: PACLITAXEL
     Indication: Endometrial cancer stage III
     Dosage: PACLITAXEL 175MG/M2. PACLITAXEL 283.20MG EVERY 2 WEEKS
     Route: 042
     Dates: start: 20240509, end: 20240509
  2. CARBOPLATIN [Concomitant]
     Active Substance: CARBOPLATIN
     Indication: Endometrial cancer stage III
     Dosage: CARBOPLATIN AUC 5 DOSAGE: 499.15MG EVERY 3 WEEKS
     Route: 042
     Dates: start: 20240509

REACTIONS (1)
  - Drug hypersensitivity [Recovered/Resolved]

NARRATIVE: CASE EVENT DATE: 20240509
